FAERS Safety Report 6066391-3 (Version None)
Quarter: 2009Q1

REPORT INFORMATION
  Report Type: 
  Country: None (occurrence: None)
  Receive Date: 20090205
  Receipt Date: 20090129
  Transmission Date: 20090719
  Serious: Yes (Life-Threatening)
  Sender: FDA-Public Use
  Company Number: US-EISAI MEDIAL RESEARCH-M7002-00645-CLI-US

PATIENT
  Sex: Male
  Weight: 65 kg

DRUGS (23)
  1. ONTAK [Suspect]
     Indication: T-CELL LYMPHOMA
     Route: 041
     Dates: end: 20080115
  2. CYCLOPHOSPHAMIDE [Suspect]
     Indication: T-CELL LYMPHOMA
     Route: 041
     Dates: end: 20080116
  3. DOXORUBICIN HCL [Suspect]
     Indication: T-CELL LYMPHOMA
     Route: 041
     Dates: end: 20080116
  4. VINCRISTINE [Concomitant]
     Indication: T-CELL LYMPHOMA
     Route: 041
     Dates: end: 20080116
  5. PREDNISONE [Concomitant]
     Indication: T-CELL LYMPHOMA
     Route: 048
     Dates: end: 20080120
  6. NEULASTA [Concomitant]
     Indication: T-CELL LYMPHOMA
     Route: 058
     Dates: end: 20080117
  7. PLAVIX [Concomitant]
  8. TOPROL-XL [Concomitant]
  9. ASPIRIN [Concomitant]
  10. CRESTOR [Concomitant]
  11. MULTI-VITAMINS [Concomitant]
  12. COMPAZINE [Concomitant]
  13. SENNA [Concomitant]
  14. ZOFRAN [Concomitant]
     Indication: NAUSEA
  15. ZOFRAN [Concomitant]
     Indication: VOMITING
  16. NYSTATIN [Concomitant]
     Indication: ORAL CANDIDIASIS
     Route: 048
     Dates: start: 20071029
  17. PROTONIX [Concomitant]
  18. ATIVAN [Concomitant]
     Indication: ANXIETY
  19. CHLORPHENIRAMINE-HYDROCODONE [Concomitant]
  20. MARINOL [Concomitant]
  21. FLUCANOZOLE [Concomitant]
     Indication: ORAL CANDIDIASIS
     Dates: start: 20080111
  22. LEXAPRO [Concomitant]
     Dates: start: 20080111
  23. MYCELEX [Concomitant]
     Indication: ORAL CANDIDIASIS
     Route: 048
     Dates: start: 20080122

REACTIONS (4)
  - LEUKOPENIA [None]
  - LYMPHOPENIA [None]
  - NEUTROPENIA [None]
  - THROMBOCYTOPENIA [None]
